FAERS Safety Report 7754621-9 (Version None)
Quarter: 2011Q3

REPORT INFORMATION
  Report Type: 
  Country: None (occurrence: None)
  Receive Date: 20110915
  Receipt Date: 20110913
  Transmission Date: 20111222
  Serious: Yes (Other)
  Sender: FDA-Public Use
  Company Number: US-MERCK-1109USA01510

PATIENT
  Age: 69 Year
  Sex: Female

DRUGS (4)
  1. FOSAMAX [Suspect]
     Indication: OSTEOPOROSIS PROPHYLAXIS
     Route: 048
     Dates: start: 20000101, end: 20100601
  2. FOSAMAX [Suspect]
     Route: 048
     Dates: start: 20000101, end: 20100601
  3. FOSAMAX [Suspect]
     Route: 048
     Dates: start: 20000101, end: 20100601
  4. FOSAMAX [Suspect]
     Indication: OSTEOPENIA
     Route: 048
     Dates: start: 20000101, end: 20100601

REACTIONS (1)
  - FEMUR FRACTURE [None]
